FAERS Safety Report 17340032 (Version 2)
Quarter: 2020Q1

REPORT INFORMATION
  Report Type: Not Available
  Country: US (occurrence: US)
  Receive Date: 20200129
  Receipt Date: 20200220
  Transmission Date: 20200409
  Serious: No
  Sender: FDA-Public Use
  Company Number: US-NEUROCRINE BIOSCIENCES INC.-2020NBI00187

PATIENT
  Age: 62 Year
  Sex: Female

DRUGS (1)
  1. INGREZZA [Suspect]
     Active Substance: VALBENAZINE
     Indication: TARDIVE DYSKINESIA
     Route: 048
     Dates: start: 20191216, end: 20200115

REACTIONS (10)
  - Urinary tract infection [Unknown]
  - Sluggishness [Unknown]
  - Dysphagia [Unknown]
  - Pneumonia viral [Unknown]
  - Memory impairment [Unknown]
  - Dehydration [Unknown]
  - Speech disorder [Unknown]
  - Drooling [Unknown]
  - Somnolence [Unknown]
  - Gait disturbance [Unknown]

NARRATIVE: CASE EVENT DATE: 20191230
